FAERS Safety Report 8266201-X (Version None)
Quarter: 2012Q2

REPORT INFORMATION
  Report Type: 
  Country: None (occurrence: None)
  Receive Date: 20120406
  Receipt Date: 20120404
  Transmission Date: 20120825
  Serious: Yes (Other)
  Sender: FDA-Public Use
  Company Number: CA-ABBOTT-12P-028-0906209-00

PATIENT
  Sex: Female
  Weight: 50.848 kg

DRUGS (5)
  1. VIT E [Concomitant]
     Indication: ROUTINE HEALTH MAINTENANCE
     Dosage: UNKNOWN
     Route: 048
     Dates: start: 20020101
  2. VITAMIN B-12 [Concomitant]
     Indication: ROUTINE HEALTH MAINTENANCE
     Dosage: UNKNOWN
     Route: 048
     Dates: start: 20020101
  3. IRON [Concomitant]
     Indication: ROUTINE HEALTH MAINTENANCE
     Dosage: UNKNOWN
     Route: 048
     Dates: start: 20020101
  4. VITAMIN D [Concomitant]
     Indication: ROUTINE HEALTH MAINTENANCE
     Dosage: UNKNOWN
     Route: 048
     Dates: start: 20020101
  5. HUMIRA [Suspect]
     Indication: CROHN'S DISEASE
     Route: 058
     Dates: start: 20110901

REACTIONS (4)
  - ANAL FISTULA [None]
  - FISTULA [None]
  - IMPAIRED HEALING [None]
  - ABSCESS [None]
